FAERS Safety Report 5478793-4 (Version None)
Quarter: 2007Q4

REPORT INFORMATION
  Report Type: 
  Country: None (occurrence: None)
  Receive Date: 20071005
  Receipt Date: 20071003
  Transmission Date: 20080405
  Serious: Yes (Death, Life-Threatening, Hospitalization, Disabling)
  Sender: FDA-Public Use
  Company Number: FR-GENENTECH-222158

PATIENT
  Sex: Female

DRUGS (5)
  1. RITUXIMAB [Suspect]
     Indication: MANTLE CELL LYMPHOMA
     Dosage: UNK, UNK
     Dates: start: 20051205
  2. CYCLOPHOSPHAMIDE [Concomitant]
     Indication: MANTLE CELL LYMPHOMA
  3. DOXORUBICIN HCL [Concomitant]
     Indication: MANTLE CELL LYMPHOMA
  4. VINCRISTINE [Concomitant]
     Indication: MANTLE CELL LYMPHOMA
  5. PREDNISONE [Concomitant]
     Indication: MANTLE CELL LYMPHOMA

REACTIONS (1)
  - ENCEPHALITIS VIRAL [None]
